FAERS Safety Report 12100634 (Version 1)
Quarter: 2016Q1

REPORT INFORMATION
  Report Type: Report from Study
  Country: BR (occurrence: BR)
  Receive Date: 20160222
  Receipt Date: 20160222
  Transmission Date: 20160526
  Serious: Yes (Congenital Anomaly, Other)
  Sender: FDA-Public Use
  Company Number: BR-MYLANLABS-2016M1006772

PATIENT

DRUGS (3)
  1. INDOMETACIN [Suspect]
     Active Substance: INDOMETHACIN
     Indication: BACK PAIN
     Dosage: 100 MG FOR 15 DAYS
     Route: 064
  2. DICLOFENAC [Suspect]
     Active Substance: DICLOFENAC
     Indication: BACK PAIN
     Dosage: 50 MG
     Route: 064
  3. CAFFEINE. [Suspect]
     Active Substance: CAFFEINE
     Indication: BACK PAIN
     Dosage: 30 MG FOR 30 DAYS
     Route: 064

REACTIONS (4)
  - Dilatation ventricular [Not Recovered/Not Resolved]
  - Pericardial effusion [Not Recovered/Not Resolved]
  - Ductus arteriosus stenosis foetal [Not Recovered/Not Resolved]
  - Foetal exposure during pregnancy [Recovered/Resolved]
